FAERS Safety Report 7874891-6 (Version None)
Quarter: 2011Q4

REPORT INFORMATION
  Report Type: 
  Country: None (occurrence: None)
  Receive Date: 20111003
  Receipt Date: 20100811
  Transmission Date: 20120403
  Serious: Yes (Death, Other)
  Sender: FDA-Public Use
  Company Number: 242736USA

PATIENT
  Age: 56 Year
  Sex: Male

DRUGS (1)
  1. PAROXETINE HYDROCHLORIDE [Suspect]
     Indication: DEPRESSION
     Dosage: DAILY, ORAL
     Route: 048
     Dates: start: 20020101, end: 20070401

REACTIONS (2)
  - COMPLETED SUICIDE [None]
  - ASPHYXIA [None]
